FAERS Safety Report 5037700-9 (Version None)
Quarter: 2006Q2

REPORT INFORMATION
  Report Type: 
  Country: None (occurrence: None)
  Receive Date: 20060626
  Receipt Date: 20060626
  Transmission Date: 20061013
  Serious: No
  Sender: FDA-Public Use
  Company Number: None

PATIENT

DRUGS (1)
  1. CIALIS [Suspect]
     Indication: ERECTILE DYSFUNCTION
     Dosage: 5 MG DAILY PO
     Route: 048
     Dates: start: 20050815, end: 20060624

REACTIONS (1)
  - POOR QUALITY DRUG ADMINISTERED [None]
